FAERS Safety Report 16449728 (Version 2)
Quarter: 2019Q2

REPORT INFORMATION
  Report Type: Spontaneous
  Country: US (occurrence: US)
  Receive Date: 20190619
  Receipt Date: 20190621
  Transmission Date: 20190711
  Serious: Yes (Other)
  Sender: FDA-Public Use
  Company Number: US-009507513-1906USA003697

PATIENT
  Sex: Female
  Weight: 81.63 kg

DRUGS (1)
  1. NEXPLANON [Suspect]
     Active Substance: ETONOGESTREL
     Indication: CONTRACEPTION
     Dosage: 1 IMPLANT IN THE LEFT ARM
     Route: 059
     Dates: start: 20180326, end: 20190327

REACTIONS (9)
  - Headache [Recovered/Resolved]
  - Complication associated with device [Recovered/Resolved]
  - Abdominal pain [Recovered/Resolved]
  - Urinary tract infection [Unknown]
  - Vomiting [Unknown]
  - Complication of device removal [Recovered/Resolved]
  - Scar [Unknown]
  - Dizziness [Unknown]
  - Urinary retention [Unknown]

NARRATIVE: CASE EVENT DATE: 201803
